FAERS Safety Report 9498885 (Version 7)
Quarter: 2015Q1

REPORT INFORMATION
  Report Type: Report from Study
  Country: FR (occurrence: CZ)
  Receive Date: 20130904
  Receipt Date: 20150115
  Transmission Date: 20150721
  Serious: Yes (Hospitalization)
  Sender: FDA-Public Use
  Company Number: CZ-FRI-1000048369

PATIENT
  Age: 50 Year
  Sex: Female
  Weight: 96 kg

DRUGS (22)
  1. SIOFOR [Concomitant]
     Active Substance: METFORMIN HYDROCHLORIDE
     Dosage: 3000 MG
     Route: 048
     Dates: start: 2010, end: 20130805
  2. EBRANTIL [Concomitant]
     Active Substance: URAPIDIL
     Dosage: 120 MG
     Route: 048
     Dates: start: 2010, end: 20130717
  3. TRITAZIDE [Concomitant]
     Active Substance: HYDROCHLOROTHIAZIDE\RAMIPRIL
     Dosage: 5/25 MG
     Route: 048
     Dates: start: 2010, end: 20130811
  4. TELMISARTAN. [Concomitant]
     Active Substance: TELMISARTAN
     Dosage: 80 MG
     Route: 048
     Dates: start: 2010
  5. ANOPYRIN [Concomitant]
     Active Substance: ASPIRIN
     Dosage: 100 MG
     Route: 048
     Dates: start: 20130709
  6. MCP HEXAL [Concomitant]
     Active Substance: METOCLOPRAMIDE HYDROCHLORIDE
     Dosage: 20-30 MG
     Route: 048
     Dates: start: 20130804, end: 20130806
  7. AMLODIPIN [Concomitant]
     Active Substance: AMLODIPINE BESYLATE
     Dosage: 10 MG
     Route: 048
     Dates: start: 2005
  8. FRAXIPARINE [Concomitant]
     Active Substance: NADROPARIN CALCIUM
     Dosage: 0.3 ML
     Route: 058
     Dates: start: 20130722, end: 20130812
  9. PROSULPIN [Concomitant]
     Active Substance: SULPIRIDE
     Indication: VOMITING
  10. ANOPYRIN [Concomitant]
     Active Substance: ASPIRIN
     Dosage: 200 MG
     Route: 048
     Dates: start: 2007, end: 20130708
  11. HEPARIN [Concomitant]
     Active Substance: HEPARIN SODIUM
     Dosage: 5000
     Route: 058
     Dates: start: 20130628, end: 20130721
  12. RANITIDINE [Concomitant]
     Active Substance: RANITIDINE\RANITIDINE HYDROCHLORIDE
     Dosage: 150 MG
     Route: 042
     Dates: start: 20130710, end: 20130717
  13. HUMALOG MIX [Concomitant]
     Active Substance: INSULIN LISPRO
     Route: 058
     Dates: start: 2010, end: 20130718
  14. DEGAN [Concomitant]
     Active Substance: METOCLOPRAMIDE HYDROCHLORIDE
     Dosage: 30 MG
     Route: 030
     Dates: start: 20130710, end: 20130717
  15. LANSOPRAZOLE. [Concomitant]
     Active Substance: LANSOPRAZOLE
     Dosage: 40 MG
     Route: 048
     Dates: start: 20130718, end: 20130806
  16. ITOPRIDE [Concomitant]
     Active Substance: ITOPRIDE
     Dosage: 150 MG
     Route: 048
     Dates: start: 20130722, end: 20130725
  17. METOPROLOL TARTRATE. [Concomitant]
     Active Substance: METOPROLOL TARTRATE
     Dosage: 200 MG
     Route: 048
     Dates: start: 2005
  18. TORECAN [Concomitant]
     Active Substance: THIETHYLPERAZINE MALATE
     Route: 048
     Dates: start: 20130725, end: 20130731
  19. TORECAN [Concomitant]
     Active Substance: THIETHYLPERAZINE MALATE
     Route: 042
     Dates: start: 20130709, end: 20130715
  20. PROSULPIN [Concomitant]
     Active Substance: SULPIRIDE
     Indication: NAUSEA
     Dosage: 100 MG
     Route: 048
     Dates: start: 20130722, end: 20130810
  21. TORECAN [Concomitant]
     Active Substance: THIETHYLPERAZINE MALATE
     Dosage: 6.5 MG
     Route: 030
     Dates: start: 20130803, end: 20130804
  22. LEVOMILNACIPRAN [Suspect]
     Active Substance: LEVOMILNACIPRAN
     Indication: CEREBROVASCULAR ACCIDENT
     Dosage: 2 DOSAGE FORMS
     Dates: start: 20130703, end: 20130730

REACTIONS (2)
  - Dehydration [Recovered/Resolved]
  - Diabetes mellitus [Recovered/Resolved]

NARRATIVE: CASE EVENT DATE: 20130709
